FAERS Safety Report 22590050 (Version 1)
Quarter: 2023Q2

REPORT INFORMATION
  Report Type: Spontaneous
  Country: US (occurrence: US)
  Receive Date: 20230612
  Receipt Date: 20230612
  Transmission Date: 20230722
  Serious: No
  Sender: FDA-Public Use
  Company Number: US-SANOFI-01646600

PATIENT
  Age: 80 Year
  Sex: Female

DRUGS (1)
  1. SELSUN BLUE MOISTURIZING [Suspect]
     Active Substance: SELENIUM SULFIDE
     Dosage: UNK

REACTIONS (2)
  - Hair colour changes [Not Recovered/Not Resolved]
  - Psoriasis [Unknown]
